FAERS Safety Report 5507231-8 (Version None)
Quarter: 2007Q4

REPORT INFORMATION
  Report Type: 
  Country: None (occurrence: None)
  Receive Date: 20071101
  Receipt Date: 20071101
  Transmission Date: 20080405
  Serious: Yes (Death)
  Sender: FDA-Public Use
  Company Number: US-RB-007480-07

PATIENT
  Sex: Female

DRUGS (2)
  1. SUBOXONE [Suspect]
     Route: 060
     Dates: start: 20070601, end: 20070701
  2. SUBOXONE [Suspect]
     Route: 060
     Dates: start: 20070601, end: 20070601

REACTIONS (1)
  - MYOCARDIAL INFARCTION [None]
